FAERS Safety Report 6824112-8 (Version None)
Quarter: 2010Q3

REPORT INFORMATION
  Report Type: 
  Country: None (occurrence: None)
  Receive Date: 20100708
  Receipt Date: 20061003
  Transmission Date: 20110219
  Serious: No
  Sender: FDA-Public Use
  Company Number: US-PFIZER INC-2006121110

PATIENT
  Sex: Male
  Weight: 71.67 kg

DRUGS (2)
  1. CHANTIX [Suspect]
     Indication: SMOKING CESSATION THERAPY
     Dates: start: 20061003
  2. PROTONIX [Concomitant]

REACTIONS (5)
  - DRUG ADMINISTRATION ERROR [None]
  - FEELING JITTERY [None]
  - FLUSHING [None]
  - NERVOUSNESS [None]
  - PYREXIA [None]
